FAERS Safety Report 7681503-3 (Version None)
Quarter: 2011Q3

REPORT INFORMATION
  Report Type: 
  Country: None (occurrence: None)
  Receive Date: 20110812
  Receipt Date: 20110804
  Transmission Date: 20111222
  Serious: Yes (Death, Life-Threatening, Hospitalization)
  Sender: FDA-Public Use
  Company Number: PHHO2011US13013

PATIENT
  Sex: Male
  Weight: 66.54 kg

DRUGS (5)
  1. AFINITOR [Suspect]
     Indication: NEOPLASM
     Dosage: 5 MG, QD
     Route: 048
     Dates: start: 20110705, end: 20110725
  2. CAPECITABINE [Suspect]
     Indication: NEOPLASM
     Dosage: 1000 MG, BID
     Route: 048
     Dates: start: 20110705, end: 20110725
  3. OXALIPLATIN [Suspect]
     Indication: NEOPLASM
     Dosage: 140 MG, UNK
     Dates: start: 20110705, end: 20110725
  4. DEXAMETHASONE [Concomitant]
     Dosage: 4 MG, UNK
     Dates: start: 20110525
  5. AVASTIN [Suspect]
     Indication: NEOPLASM
     Dosage: 600 MG, UNK
     Dates: start: 20110705, end: 20110725

REACTIONS (4)
  - HYPOVOLAEMIC SHOCK [None]
  - NEOPLASM MALIGNANT [None]
  - GASTROINTESTINAL HAEMORRHAGE [None]
  - NEOPLASM PROGRESSION [None]
